FAERS Safety Report 17761368 (Version 1)
Quarter: 2020Q2

REPORT INFORMATION
  Report Type: Report from Study
  Country: IN (occurrence: IN)
  Receive Date: 20200508
  Receipt Date: 20200508
  Transmission Date: 20200714
  Serious: Yes (Death)
  Sender: FDA-Public Use
  Company Number: IN-ASTRAZENECA-2020SE60926

PATIENT
  Age: 70 Year
  Sex: Female

DRUGS (16)
  1. INJ.HUMALOG MIX 25 [Concomitant]
     Indication: DIABETES MELLITUS
     Dosage: TWO TIMES A DAY
     Route: 048
     Dates: end: 20200422
  2. ASPRIN [Concomitant]
     Active Substance: ASPIRIN
     Indication: CARDIAC DISORDER
     Dosage: DAILY
     Route: 048
     Dates: end: 20200422
  3. PROZOCIN XL [Concomitant]
     Indication: BLOOD PRESSURE ABNORMAL
     Dosage: DAILY
     Route: 048
     Dates: end: 20200422
  4. RANOLAZ [Concomitant]
     Indication: CARDIAC DISORDER
     Dosage: TWO TIMES A DAY
     Route: 048
     Dates: end: 20200422
  5. NIKORANDIL [Concomitant]
     Indication: CARDIAC DISORDER
     Dosage: TWO TIMES A DAY
     Route: 048
     Dates: end: 20200422
  6. SYP. CREMAFFIN PLUS [Concomitant]
     Indication: CONSTIPATION
     Dosage: DAILY
     Route: 048
     Dates: end: 20200422
  7. BRILINTA [Suspect]
     Active Substance: TICAGRELOR
     Indication: CARDIAC DISORDER
     Route: 048
     Dates: start: 20191221, end: 20200422
  8. SYRUP SUCRALFATE [Concomitant]
     Indication: ULCER
     Dosage: THREE TIMES A DAY
     Route: 048
     Dates: end: 20200422
  9. NODOSIS [Concomitant]
     Active Substance: SODIUM BICARBONATE
     Indication: ACID BASE BALANCE ABNORMAL
     Dosage: TWO TIMES A DAY
     Route: 048
     Dates: end: 20200422
  10. ISORDIL S/L [Concomitant]
     Indication: CARDIAC DISORDER
     Dosage: AS REQUIRED
     Route: 048
     Dates: end: 20200422
  11. CILNIDIPINE [Concomitant]
     Active Substance: CILNIDIPINE
     Indication: BLOOD PRESSURE ABNORMAL
     Dosage: DAILY
     Route: 048
     Dates: end: 20200422
  12. ATORVASTATIN [Concomitant]
     Active Substance: ATORVASTATIN
     Indication: BLOOD CHOLESTEROL ABNORMAL
     Dosage: DAILY
     Route: 048
     Dates: end: 20200422
  13. IRON+ZINC [Concomitant]
     Indication: BLOOD IRON ABNORMAL
     Dosage: TWO TIMES A DAY
     Route: 048
     Dates: end: 20200422
  14. FUROSEMIDE. [Concomitant]
     Active Substance: FUROSEMIDE
     Indication: CARDIAC DISORDER
     Dosage: DAILY
     Route: 048
     Dates: end: 20200422
  15. IVABRADINE [Concomitant]
     Active Substance: IVABRADINE
     Indication: CARDIAC DISORDER
     Dosage: TWO TIMES A DAY
     Route: 048
     Dates: end: 20200422
  16. NITROCONTIN [Concomitant]
     Indication: CARDIAC DISORDER
     Dosage: TWO TIMES A DAY
     Route: 048
     Dates: end: 20200422

REACTIONS (1)
  - Death [Fatal]

NARRATIVE: CASE EVENT DATE: 20200422
